FAERS Safety Report 8881024 (Version 1)
Quarter: 2012Q4

REPORT INFORMATION
  Report Type: 
  Country: DE (occurrence: DE)
  Receive Date: 20121101
  Receipt Date: 20121101
  Transmission Date: 20130627
  Serious: Yes (Other)
  Sender: FDA-Public Use
  Company Number: DE-UCBSA-069861

PATIENT
  Sex: Female

DRUGS (2)
  1. VIMPAT [Suspect]
     Dosage: 50MG-0-100MG
     Route: 048
  2. LAMOTRIGIN [Concomitant]

REACTIONS (2)
  - Unintended pregnancy [Unknown]
  - Pregnancy [Recovered/Resolved]
